FAERS Safety Report 8403654-8 (Version None)
Quarter: 2012Q2

REPORT INFORMATION
  Report Type: 
  Country: None (occurrence: None)
  Receive Date: 20120601
  Receipt Date: 20120528
  Transmission Date: 20120825
  Serious: Yes (Death)
  Sender: FDA-Public Use
  Company Number: RU-ACTELION-A-CH2012-66373

PATIENT
  Sex: Female

DRUGS (3)
  1. TRACLEER [Suspect]
     Dosage: 62.5 MG, BID
     Route: 048
     Dates: start: 20110501, end: 20110601
  2. TRACLEER [Suspect]
     Indication: PULMONARY ARTERIAL HYPERTENSION
     Dosage: 125 MG, BID
     Route: 048
     Dates: start: 20110601, end: 20120409
  3. SILDENAFIL [Concomitant]

REACTIONS (1)
  - EMBOLISM [None]
